FAERS Safety Report 5063839-8 (Version None)
Quarter: 2006Q3

REPORT INFORMATION
  Report Type: 
  Country: None (occurrence: None)
  Receive Date: 20060726
  Receipt Date: 20060726
  Transmission Date: 20061208
  Serious: Yes (Hospitalization)
  Sender: FDA-Public Use
  Company Number: None

PATIENT
  Sex: Female
  Weight: 97 kg

DRUGS (11)
  1. GEFITINIB 750MG TABS, ASTRAZENECA [Suspect]
     Indication: GLIOBLASTOMA MULTIFORME
     Dosage: 750 MG PO, QD
     Route: 048
     Dates: start: 20040817
  2. RAPAMUNE [Suspect]
     Indication: GLIOBLASTOMA MULTIFORME
     Dosage: 1 MG PO, M-W-F
     Route: 048
     Dates: start: 20040817
  3. DILANTIN [Concomitant]
  4. LIPITOR [Concomitant]
  5. LOVENOX [Concomitant]
  6. DECADRON [Concomitant]
  7. ZANTAC [Concomitant]
  8. K-DUR 10 [Concomitant]
  9. BACTRIM DS [Concomitant]
  10. CALCIUM GLUCONATE [Concomitant]
  11. LOMOTIL [Concomitant]

REACTIONS (4)
  - NAUSEA [None]
  - ORAL INTAKE REDUCED [None]
  - VERTIGO [None]
  - VOMITING [None]
